FAERS Safety Report 17840058 (Version 1)
Quarter: 2020Q2

REPORT INFORMATION
  Report Type: Spontaneous
  Country: US (occurrence: US)
  Receive Date: 20200529
  Receipt Date: 20200529
  Transmission Date: 20200714
  Serious: Yes (Other)
  Sender: FDA-Public Use
  Company Number: None

PATIENT
  Age: 64 Year
  Sex: Male
  Weight: 120.2 kg

DRUGS (17)
  1. CLOPIDOGREL [Concomitant]
     Active Substance: CLOPIDOGREL BISULFATE
     Dates: start: 20200514, end: 20200528
  2. LEVOTHYROXINE. [Concomitant]
     Active Substance: LEVOTHYROXINE
     Dates: start: 20200514, end: 20200528
  3. ATROPINE 1% (ORALLY) [Concomitant]
     Dates: start: 20200517, end: 20200527
  4. HEPARIN SUBQ [Concomitant]
     Dates: start: 20200514, end: 20200528
  5. NOREPINEPHRINE. [Concomitant]
     Active Substance: NOREPINEPHRINE
     Dates: start: 20200514, end: 20200517
  6. PROPOFOL. [Concomitant]
     Active Substance: PROPOFOL
     Dates: start: 20200514, end: 20200526
  7. ALBUTEROL. [Concomitant]
     Active Substance: ALBUTEROL
     Dates: start: 20200514, end: 20200527
  8. TOCILIZUMAB. [Concomitant]
     Active Substance: TOCILIZUMAB
     Dates: start: 20200520, end: 20200520
  9. ACETYLCYSTEINE 20% ORAL SOLUTION [Concomitant]
     Dates: start: 20200514, end: 20200527
  10. LEVOFLOXACIN. [Concomitant]
     Active Substance: LEVOFLOXACIN
     Dates: start: 20200514, end: 20200523
  11. MIDAZOLAM. [Concomitant]
     Active Substance: MIDAZOLAM
     Dates: start: 20200514, end: 20200515
  12. PANTOPRAZOLE [Concomitant]
     Active Substance: PANTOPRAZOLE
     Dates: start: 20200514, end: 20200528
  13. AZTREONAM. [Concomitant]
     Active Substance: AZTREONAM
     Dates: start: 20200513, end: 20200523
  14. FUROSEMIDE. [Concomitant]
     Active Substance: FUROSEMIDE
     Dates: start: 20200517, end: 20200523
  15. DOCUSATE [Concomitant]
     Active Substance: DOCUSATE
     Dates: start: 20200518, end: 20200528
  16. REMDESIVIR. [Suspect]
     Active Substance: REMDESIVIR
     Indication: COVID-19 PNEUMONIA
     Route: 040
     Dates: start: 20200514, end: 20200523
  17. ACETAMINOPHEN. [Concomitant]
     Active Substance: ACETAMINOPHEN
     Dates: start: 20200515, end: 20200519

REACTIONS (7)
  - Interleukin level increased [None]
  - Haematuria [None]
  - Blood creatinine increased [None]
  - C-reactive protein increased [None]
  - Seizure [None]
  - Glomerular filtration rate decreased [None]
  - Fibrin D dimer increased [None]

NARRATIVE: CASE EVENT DATE: 20200527
